FAERS Safety Report 8068499 (Version 5)
Quarter: 2013Q1

REPORT INFORMATION
  Report Type: Report from Study
  Country: US (occurrence: US)
  Receive Date: 20110804
  Receipt Date: 20130111
  Transmission Date: 20140127
  Serious: Yes (Hospitalization)
  Sender: FDA-Public Use
  Company Number: US-JNJFOC-20110800337

PATIENT
  Age: 16 Year
  Sex: Male
  Weight: 49.3 kg

DRUGS (20)
  1. HUMIRA [Concomitant]
     Dates: start: 20090821
  2. ACETAMINOPHEN [Concomitant]
  3. IBUPROFEN [Concomitant]
  4. ASCORBIC ACID [Concomitant]
  5. BENZOYL PEROXIDE [Concomitant]
  6. CALCIUM 600 AND VITAMIN D [Concomitant]
  7. ADAPALENE [Concomitant]
  8. ANTIBIOTICS [Concomitant]
     Indication: INFLAMMATORY BOWEL DISEASE
  9. CHOLECALCIFEROL [Concomitant]
  10. CLINDAMYCIN [Concomitant]
  11. DAPSONE [Concomitant]
  12. FOLIC ACID [Concomitant]
  13. LETROZOLE [Concomitant]
  14. LEVOTHYROXINE [Concomitant]
  15. PROBIOTICS [Concomitant]
  16. METHOTREXATE [Concomitant]
  17. MULTIVITAMINS [Concomitant]
  18. OMEPRAZOLE [Concomitant]
  19. GROWTH HORMONE [Concomitant]
  20. REMICADE [Suspect]
     Indication: INFLAMMATORY BOWEL DISEASE
     Route: 042
     Dates: start: 20090706, end: 20090723

REACTIONS (1)
  - Muscular weakness [Recovered/Resolved]
